FAERS Safety Report 5312418-3 (Version None)
Quarter: 2007Q2

REPORT INFORMATION
  Report Type: 
  Country: None (occurrence: None)
  Receive Date: 20070430
  Receipt Date: 20061101
  Transmission Date: 20071010
  Serious: No
  Sender: FDA-Public Use
  Company Number: 2006UW21093

PATIENT
  Age: 82 Year
  Sex: Female
  Weight: 44.9 kg

DRUGS (5)
  1. NEXIUM [Suspect]
     Indication: REFLUX OESOPHAGITIS
     Route: 048
     Dates: start: 20060801
  2. ACTONEL [Concomitant]
  3. PREDNISONE TAB [Concomitant]
  4. VITAMINS [Concomitant]
  5. CALCIUM CHLORIDE [Concomitant]

REACTIONS (4)
  - ABDOMINAL DISTENSION [None]
  - OEDEMA PERIPHERAL [None]
  - SENSATION OF FOREIGN BODY [None]
  - STOMACH DISCOMFORT [None]
